FAERS Safety Report 16172576 (Version 1)
Quarter: 2019Q2

REPORT INFORMATION
  Report Type: Spontaneous
  Country: ES (occurrence: ES)
  Receive Date: 20190409
  Receipt Date: 20190409
  Transmission Date: 20190711
  Serious: Yes (Other)
  Sender: FDA-Public Use
  Company Number: ES-ACCORD-119499

PATIENT
  Age: 90 Year
  Sex: Female

DRUGS (4)
  1. FUROSEMIDE. [Suspect]
     Active Substance: FUROSEMIDE
     Indication: HYPERTENSION
     Route: 065
  2. PROPRANOLOL [Suspect]
     Active Substance: PROPRANOLOL HYDROCHLORIDE
     Indication: PRODUCT USED FOR UNKNOWN INDICATION
  3. EUTIROX [Suspect]
     Active Substance: LEVOTHYROXINE SODIUM
     Indication: HYPOTHYROIDISM
     Route: 065
  4. NITROFURANTOIN/NITROFURANTOIN SODIUM [Concomitant]
     Indication: URINARY TRACT INFECTION
     Route: 065

REACTIONS (3)
  - Dyspnoea [Recovering/Resolving]
  - Choking [Recovering/Resolving]
  - Pyrexia [Recovering/Resolving]
